FAERS Safety Report 13377957 (Version 1)
Quarter: 2017Q1

REPORT INFORMATION
  Report Type: Spontaneous
  Country: US (occurrence: US)
  Receive Date: 20170328
  Receipt Date: 20170328
  Transmission Date: 20170429
  Serious: No
  Sender: FDA-Public Use
  Company Number: US-OSMOTICA_PHARMACEUTICAL_US_LLC-POI0573201600074

PATIENT
  Age: 82 Year
  Sex: Female

DRUGS (4)
  1. OXYBUTYNIN CHLORIDE. [Suspect]
     Active Substance: OXYBUTYNIN CHLORIDE
     Indication: URINARY INCONTINENCE
     Dosage: QAM
     Dates: start: 201604, end: 20161204
  2. TOLTERODINE [Concomitant]
     Active Substance: TOLTERODINE
     Indication: URINARY INCONTINENCE
     Dates: start: 20161205
  3. TOLTERODINE [Concomitant]
     Active Substance: TOLTERODINE
     Dates: start: 201604, end: 20161204
  4. TOLTERODINE [Concomitant]
     Active Substance: TOLTERODINE
     Dates: start: 201604, end: 201604

REACTIONS (2)
  - Drug ineffective [Recovered/Resolved]
  - Extra dose administered [Recovered/Resolved]

NARRATIVE: CASE EVENT DATE: 201611
